FAERS Safety Report 8576628-4 (Version None)
Quarter: 2012Q3

REPORT INFORMATION
  Report Type: 
  Country: None (occurrence: None)
  Receive Date: 20120725
  Receipt Date: 20120719
  Transmission Date: 20120928
  Serious: Yes (Other)
  Sender: FDA-Public Use
  Company Number: DSA_57606_2012

PATIENT
  Sex: Male

DRUGS (1)
  1. XENAZINE [Suspect]
     Indication: MUSCLE SPASMS
     Dosage: (12.5 MG QD ORAL), (DF)
     Route: 048
     Dates: end: 20120529

REACTIONS (4)
  - DEPRESSION [None]
  - FATIGUE [None]
  - INSOMNIA [None]
  - ANXIETY [None]
